FAERS Safety Report 21615579 (Version 1)
Quarter: 2022Q4

REPORT INFORMATION
  Report Type: Spontaneous
  Country: US (occurrence: None)
  Receive Date: 20221118
  Receipt Date: 20221118
  Transmission Date: 20230113
  Serious: Yes (Hospitalization)
  Sender: FDA-Public Use
  Company Number: None

PATIENT
  Age: 46 Year
  Sex: Male
  Weight: 86.1 kg

DRUGS (15)
  1. ISOVUE 300 [Suspect]
     Active Substance: IOPAMIDOL
     Indication: Angiogram cerebral
     Dosage: OTHER FREQUENCY : ONCE;?OTHER ROUTE : INTRACATHETER;?
     Route: 050
  2. verapamil 2.5 mg/mL [Concomitant]
     Dates: start: 20221117, end: 20221117
  3. FENTANYL [Concomitant]
     Active Substance: FENTANYL
     Dates: start: 20221117, end: 20221117
  4. heparin 4000 units/L [Concomitant]
     Dates: start: 20221117, end: 20221117
  5. midazolam 1 mg [Concomitant]
     Dates: start: 20221117, end: 20221117
  6. nitroglycerin 0.1 mg/mL inj [Concomitant]
     Dates: start: 20221117, end: 20221117
  7. 0.9% sodium chloride infusion [Concomitant]
     Dates: start: 20221117, end: 20221117
  8. nitroglycerin 2% ointment [Concomitant]
     Dates: start: 20221117, end: 20221117
  9. acetaminophen 650 mg tab [Concomitant]
     Dates: start: 20221112
  10. fioricet q6h prn HA [Concomitant]
     Dates: start: 20221111
  11. desmopressin 200 mcg tab [Concomitant]
     Dates: start: 20221111
  12. metoclopramide 10 mg inj [Concomitant]
     Dates: start: 20221115
  13. nimodipine 60 mg capsules [Concomitant]
     Dates: start: 20221111
  14. diphenhydramine 50 mg inj [Concomitant]
     Dates: start: 20221117
  15. methylprednisolone 125 mg inj [Concomitant]
     Dates: start: 20221117, end: 20221117

REACTIONS (8)
  - Documented hypersensitivity to administered product [None]
  - Headache [None]
  - Diplopia [None]
  - Gaze palsy [None]
  - Cerebral microinfarction [None]
  - Reversible cerebral vasoconstriction syndrome [None]
  - Cerebrovascular accident [None]
  - Contrast media reaction [None]

NARRATIVE: CASE EVENT DATE: 20221117
